FAERS Safety Report 5777203-7 (Version None)
Quarter: 2008Q2

REPORT INFORMATION
  Report Type: 
  Country: None (occurrence: None)
  Receive Date: 20080618
  Receipt Date: 20080606
  Transmission Date: 20081010
  Serious: Yes (Hospitalization)
  Sender: FDA-Public Use
  Company Number: US-ELI_LILLY_AND_COMPANY-US200806001834

PATIENT
  Sex: Male
  Weight: 105.22 kg

DRUGS (15)
  1. BYETTA [Suspect]
     Indication: TYPE 2 DIABETES MELLITUS
     Dosage: 5 UG, 2/D
     Route: 058
     Dates: start: 20070101, end: 20070101
  2. BYETTA [Suspect]
     Dosage: 10 UG, 2/D
     Route: 058
     Dates: start: 20070101, end: 20080501
  3. BYETTA [Suspect]
     Dosage: 10 UG, DAILY (1/D)
     Route: 058
     Dates: start: 20080501, end: 20080530
  4. NEXIUM [Concomitant]
     Dosage: 30 MG, DAILY (1/D)
     Dates: end: 20080530
  5. NEXIUM [Concomitant]
     Dosage: 30 MG, DAILY (1/D)
     Dates: start: 20080606
  6. GLYBURIDE [Concomitant]
     Indication: TYPE 2 DIABETES MELLITUS
     Dosage: 2.5 MG, 2/D
     Dates: start: 20020101, end: 20080530
  7. GLYBURIDE [Concomitant]
     Dosage: 2.5 MG, 2/D
     Dates: start: 20080606
  8. METFORMIN [Concomitant]
     Indication: TYPE 2 DIABETES MELLITUS
     Dosage: 500 MG, 2/D
     Dates: start: 20020101, end: 20080530
  9. METFORMIN [Concomitant]
     Dosage: 500 MG, 2/D
     Dates: start: 20080606
  10. TRICOR [Concomitant]
     Indication: BLOOD CHOLESTEROL INCREASED
     Dosage: 145 MG, DAILY (1/D)
     Dates: end: 20080530
  11. TRICOR [Concomitant]
     Dosage: 145 MG, DAILY (1/D)
     Dates: start: 20080606
  12. LIPITOR [Concomitant]
     Indication: BLOOD CHOLESTEROL INCREASED
     Dosage: 20 MG, DAILY (1/D)
     Dates: end: 20080530
  13. LIPITOR [Concomitant]
     Dosage: 20 MG, DAILY (1/D)
     Dates: start: 20080606
  14. ORAL ANTIDIABETICS [Concomitant]
     Indication: TYPE 2 DIABETES MELLITUS
     Dosage: 50 MG, DAILY (1/D)
     Dates: start: 20080101, end: 20080530
  15. ORAL ANTIDIABETICS [Concomitant]
     Dosage: 50 MG, DAILY (1/D)
     Dates: start: 20080606

REACTIONS (5)
  - ABDOMINAL PAIN UPPER [None]
  - NAUSEA [None]
  - PANCREATITIS ACUTE [None]
  - VOMITING [None]
  - WEIGHT DECREASED [None]
